FAERS Safety Report 24216068 (Version 1)
Quarter: 2024Q3

REPORT INFORMATION
  Report Type: Spontaneous
  Country: US (occurrence: US)
  Receive Date: 20240816
  Receipt Date: 20240816
  Transmission Date: 20241017
  Serious: No
  Sender: ROCHE
  Company Number: US-ROCHE-10000057061

PATIENT
  Age: 70 Year
  Sex: Female

DRUGS (1)
  1. ACTEMRA ACTPEN [Suspect]
     Active Substance: TOCILIZUMAB
     Indication: Fibromyalgia
     Dosage: ACTEMRA ACTPEN 162MG/0.9ML
     Route: 058
     Dates: start: 20240221

REACTIONS (3)
  - Neuralgia [Unknown]
  - Urine odour abnormal [Unknown]
  - Off label use [Unknown]
